FAERS Safety Report 6210747-2 (Version None)
Quarter: 2009Q2

REPORT INFORMATION
  Report Type: 
  Country: None (occurrence: None)
  Receive Date: 20090528
  Receipt Date: 20090528
  Transmission Date: 20091009
  Serious: Yes (Life-Threatening, Hospitalization)
  Sender: FDA-Public Use
  Company Number: None

PATIENT
  Age: 13 Year
  Sex: Female
  Weight: 57.5 kg

DRUGS (1)
  1. PEG ASPARAGINASE 750 UNITS/ ML INTERNATIONAL ENZON [Suspect]
     Indication: ACUTE MYELOID LEUKAEMIA
     Dosage: 3900 UNITS ONCE IM
     Route: 030
     Dates: start: 20090526, end: 20090526

REACTIONS (1)
  - ANAPHYLACTIC REACTION [None]
